FAERS Safety Report 8340548-0 (Version None)
Quarter: 2012Q2

REPORT INFORMATION
  Report Type: 
  Country: None (occurrence: None)
  Receive Date: 20120507
  Receipt Date: 20120425
  Transmission Date: 20120825
  Serious: Yes (Hospitalization)
  Sender: FDA-Public Use
  Company Number: IL-TEVA-336109ISR

PATIENT
  Age: 13 Year
  Sex: Male

DRUGS (1)
  1. ADDERALL 5 [Suspect]
     Dates: start: 20120417

REACTIONS (4)
  - CHEST DISCOMFORT [None]
  - THROAT TIGHTNESS [None]
  - TREMOR [None]
  - DYSPNOEA [None]
